FAERS Safety Report 9976077 (Version 2)
Quarter: 2014Q2

REPORT INFORMATION
  Report Type: Spontaneous
  Country: US (occurrence: US)
  Receive Date: 20140306
  Receipt Date: 20140402
  Transmission Date: 20141212
  Serious: No
  Sender: FDA-Public Use
  Company Number: US-PFIZER INC-2014063718

PATIENT
  Age: 42 Year
  Sex: Female

DRUGS (5)
  1. ZITHROMAX [Suspect]
     Indication: BRONCHITIS
     Dosage: 250 MG, 250 MG 2 TABS X 1 THEN 1 DAILY X 4DAY
     Route: 048
     Dates: start: 20110107, end: 20110111
  2. DICLOFENAC [Concomitant]
     Dosage: 75 MG, 2X/DAY
     Dates: end: 20110111
  3. PAXIL [Concomitant]
     Dosage: 20 MG, DAILY
     Dates: end: 20110111
  4. LOVASTATIN [Concomitant]
     Dosage: 20 MG, UNK
     Dates: end: 20110111
  5. CHERATUSSIN [Concomitant]
     Dosage: UNK

REACTIONS (2)
  - Drug hypersensitivity [Unknown]
  - Swelling face [Recovered/Resolved]
